FAERS Safety Report 24382242 (Version 1)
Quarter: 2024Q4

REPORT INFORMATION
  Report Type: Report from Study
  Country: US (occurrence: US)
  Receive Date: 20241001
  Receipt Date: 20241001
  Transmission Date: 20250115
  Serious: Yes (Hospitalization)
  Sender: ACCORD
  Company Number: US-Accord-448406

PATIENT
  Sex: Male
  Weight: 108.18 kg

DRUGS (1)
  1. CLOZAPINE [Suspect]
     Active Substance: CLOZAPINE
     Indication: Schizoaffective disorder
     Dosage: 225MG, ORAL, TWICE DAILY
     Route: 048

REACTIONS (3)
  - Psychotic symptom [Unknown]
  - Treatment noncompliance [Unknown]
  - Abnormal behaviour [Unknown]
